FAERS Safety Report 7676911-0 (Version None)
Quarter: 2011Q3

REPORT INFORMATION
  Report Type: 
  Country: None (occurrence: None)
  Receive Date: 20110811
  Receipt Date: 20110802
  Transmission Date: 20111222
  Serious: Yes (Other)
  Sender: FDA-Public Use
  Company Number: PHHY2011US07413

PATIENT
  Sex: Female
  Weight: 77 kg

DRUGS (11)
  1. MAGNESIUM CITRATE [Concomitant]
  2. SENOKOT [Concomitant]
  3. POLYETHYLENE GLYCOL [Concomitant]
  4. EXJADE [Suspect]
     Indication: IRON METABOLISM DISORDER
     Dosage: 1000 MG, DAILY
     Route: 048
     Dates: start: 20090301, end: 20110501
  5. VERAPAMIL [Concomitant]
  6. FOLIC ACID [Concomitant]
  7. WARFARIN [Concomitant]
  8. BENICAR [Concomitant]
  9. ETHYLENE GLYCOL [Concomitant]
  10. MIRALAX [Concomitant]
  11. POTASSIUM [Concomitant]

REACTIONS (6)
  - SEASONAL ALLERGY [None]
  - HEADACHE [None]
  - BRONCHITIS [None]
  - FUNCTIONAL GASTROINTESTINAL DISORDER [None]
  - RHINORRHOEA [None]
  - CONSTIPATION [None]
